FAERS Safety Report 25120452 (Version 1)
Quarter: 2025Q1

REPORT INFORMATION
  Report Type: Spontaneous
  Country: ES (occurrence: ES)
  Receive Date: 20250325
  Receipt Date: 20250325
  Transmission Date: 20250409
  Serious: Yes (Other)
  Sender: MYLAN
  Company Number: None

PATIENT
  Age: 65 Year
  Sex: Male

DRUGS (8)
  1. CITALOPRAM [Suspect]
     Active Substance: CITALOPRAM
     Indication: Anxiety
     Dosage: 20 MILLIGRAM, QD (24 HOURS)
     Dates: start: 20120130, end: 20241022
  2. CITALOPRAM [Suspect]
     Active Substance: CITALOPRAM
     Dosage: 10 MILLIGRAM, QD (24 HOURS)
     Dates: start: 20241022, end: 20250219
  3. AMLODIPINE BESYLATE [Concomitant]
     Active Substance: AMLODIPINE BESYLATE
     Dosage: 5 MILLIGRAM, QD (24 HOURS) 30 TABLETS
     Dates: start: 20161003
  4. ENALAPRIL\HYDROCHLOROTHIAZIDE [Concomitant]
     Active Substance: ENALAPRIL\HYDROCHLOROTHIAZIDE
     Dosage: 1 DOSAGE FORM, QD (24 HOURS) 28 TABLETS
     Dates: start: 20161003
  5. ALBUTEROL [Concomitant]
     Active Substance: ALBUTEROL
     Dosage: 1 DOSAGE FORM, Q8H (100 UG/DOSE SUSPENSION FOR INHALATION IN PRESSURE PACKAGE,1 INHALER OF 200 DOSE
     Dates: start: 20120315
  6. LORAZEPAM [Concomitant]
     Active Substance: LORAZEPAM
     Dosage: 2.5MG,QD(REGIMEN: BREAKFAST 1 TAB OF 1 MG, LUNCH HALF A TAB OF 1 MG, DINNER 1 TAB OF 1 MG) 50 TABS
     Dates: start: 20120124
  7. TOPAMAX [Concomitant]
     Active Substance: TOPIRAMATE
     Dosage: 100 MILLIGRAM, QD (24 HOURS) 60 TABLETS
     Dates: start: 20120104
  8. FOSTER [Concomitant]
     Active Substance: BECLOMETHASONE\FORMOTEROL
     Dosage: 2 DOSAGE FORM, BID(12 HOURS)200UG/6UG/PULSION INHALATION SOLUTION, 1 INHALER OF 120 PUFFS
     Dates: start: 20180411

REACTIONS (4)
  - Anorgasmia [Recovered/Resolved]
  - Male sexual dysfunction [Recovered/Resolved]
  - Erectile dysfunction [Recovered/Resolved]
  - Ejaculation delayed [Recovered/Resolved]

NARRATIVE: CASE EVENT DATE: 20211025
